FAERS Safety Report 13216565 (Version 1)
Quarter: 2017Q1

REPORT INFORMATION
  Report Type: Other
  Country: US (occurrence: US)
  Receive Date: 20170210
  Receipt Date: 20170210
  Transmission Date: 20170428
  Serious: No
  Sender: FDA-Public Use
  Company Number: US-ACORDA-ACO_124499_2016

PATIENT
  Age: 61 Year
  Sex: Female

DRUGS (1)
  1. AMPYRA [Suspect]
     Active Substance: DALFAMPRIDINE
     Indication: PRODUCT USED FOR UNKNOWN INDICATION
     Dosage: UNK

REACTIONS (9)
  - Fall [Unknown]
  - Multiple sclerosis [Unknown]
  - Pain in extremity [Unknown]
  - Hypertension [Unknown]
  - Hypoaesthesia [Unknown]
  - Decubitus ulcer [Unknown]
  - Glucose tolerance impaired [Unknown]
  - Joint instability [Unknown]
  - Asthenia [Unknown]
